FAERS Safety Report 9564512 (Version 2)
Quarter: 2013Q3

REPORT INFORMATION
  Report Type: Spontaneous
  Country: US (occurrence: US)
  Receive Date: 20130930
  Receipt Date: 20130930
  Transmission Date: 20140515
  Serious: Yes (Other)
  Sender: FDA-Public Use
  Company Number: US-PFIZER INC-2013169067

PATIENT
  Age: 71 Year
  Sex: Male
  Weight: 83.9 kg

DRUGS (7)
  1. CHANTIX [Suspect]
     Indication: SMOKING CESSATION THERAPY
     Dosage: 0.5 MG, DAILY (1 MG SPLIT)
     Route: 048
     Dates: start: 201309, end: 201309
  2. CHANTIX [Suspect]
     Dosage: 0.5 MG 2X/DAY (SPLIT 1 MG)
     Dates: start: 201309, end: 201309
  3. CHANTIX [Suspect]
     Dosage: 1 MG, 2X/DAY
     Dates: start: 201309, end: 201309
  4. CITALOPRAM [Concomitant]
     Dosage: UNK
  5. DONEPEZIL [Concomitant]
     Dosage: UNK
  6. PRIMIDONE [Concomitant]
     Indication: TREMOR
     Dosage: UNK
  7. LAMOTRIGINE [Concomitant]
     Dosage: UNK

REACTIONS (2)
  - Dementia Alzheimer^s type [Unknown]
  - Drug ineffective [Unknown]
